FAERS Safety Report 21989992 (Version 1)
Quarter: 2023Q1

REPORT INFORMATION
  Report Type: Spontaneous
  Country: US (occurrence: US)
  Receive Date: 20230214
  Receipt Date: 20230214
  Transmission Date: 20230418
  Serious: No
  Sender: FDA-Public Use
  Company Number: US-PFIZER INC-PV202300027976

PATIENT
  Sex: Female
  Weight: 58.05 kg

DRUGS (2)
  1. NURTEC ODT [Suspect]
     Active Substance: RIMEGEPANT SULFATE
     Indication: Migraine
     Dosage: 75 MG, DAILY
     Route: 048
     Dates: start: 2022
  2. NURTEC ODT [Suspect]
     Active Substance: RIMEGEPANT SULFATE
     Dosage: 75 MG, ALTERNATE DAY (EVERY OTHER DAY)
     Route: 048
     Dates: start: 2022

REACTIONS (1)
  - Therapeutic product effect incomplete [Unknown]
